FAERS Safety Report 7458853-9 (Version None)
Quarter: 2011Q2

REPORT INFORMATION
  Report Type: 
  Country: None (occurrence: None)
  Receive Date: 20110504
  Receipt Date: 20110421
  Transmission Date: 20111010
  Serious: Yes (Hospitalization)
  Sender: FDA-Public Use
  Company Number: FR-KINGPHARMUSA00001-K201100490

PATIENT
  Sex: Female

DRUGS (2)
  1. GALVUS [Concomitant]
     Indication: DIABETES MELLITUS
  2. ALTACE [Suspect]
     Dosage: UNK
     Route: 048

REACTIONS (2)
  - HYPERSENSITIVITY [None]
  - STOMATITIS [None]
